FAERS Safety Report 7896608-1 (Version None)
Quarter: 2011Q4

REPORT INFORMATION
  Report Type: 
  Country: None (occurrence: None)
  Receive Date: 20111107
  Receipt Date: 20111027
  Transmission Date: 20120403
  Serious: Yes (Hospitalization)
  Sender: FDA-Public Use
  Company Number: US-BIOGENIDEC-2010BI023628

PATIENT
  Age: 58 Year
  Sex: Female
  Weight: 46 kg

DRUGS (8)
  1. NEURONTIN [Concomitant]
     Indication: MULTIPLE SCLEROSIS
  2. DIURETIC (NOS) [Concomitant]
  3. AVONEX [Suspect]
     Indication: MULTIPLE SCLEROSIS
     Route: 030
     Dates: start: 19961001, end: 20030801
  4. AVONEX [Suspect]
     Route: 030
     Dates: start: 20030801
  5. PROTONIX [Concomitant]
     Indication: GASTROOESOPHAGEAL REFLUX DISEASE
  6. NUVIGIL [Concomitant]
     Indication: ASTHENIA
  7. BACLOFEN [Concomitant]
     Indication: MUSCLE SPASMS
  8. MACROBID [Concomitant]
     Indication: PROPHYLAXIS URINARY TRACT INFECTION

REACTIONS (8)
  - CONSTIPATION [None]
  - URINARY TRACT INFECTION [None]
  - SECONDARY PROGRESSIVE MULTIPLE SCLEROSIS [None]
  - CERVICAL VERTEBRAL FRACTURE [None]
  - HYPONATRAEMIA [None]
  - MULTIPLE SCLEROSIS RELAPSE [None]
  - HYPERTENSION [None]
  - TREMOR [None]
